FAERS Safety Report 21004571 (Version 1)
Quarter: 2022Q2

REPORT INFORMATION
  Report Type: Spontaneous
  Country: US (occurrence: US)
  Receive Date: 20220624
  Receipt Date: 20220624
  Transmission Date: 20220720
  Serious: No
  Sender: FDA-Public Use
  Company Number: US-PFIZER INC-202200888781

PATIENT
  Age: 81 Year
  Sex: Female
  Weight: 77.11 kg

DRUGS (5)
  1. LEVOXYL [Suspect]
     Active Substance: LEVOTHYROXINE SODIUM
     Indication: Thyroid disorder
     Dosage: 75 UG, 1X/DAY
  2. CANDESARTAN [Suspect]
     Active Substance: CANDESARTAN
     Indication: Blood pressure measurement
     Dosage: 32 MG
  3. CANDESARTAN [Suspect]
     Active Substance: CANDESARTAN
     Dosage: 16 MG, 1X/DAY
  4. GLIPIZIDE [Concomitant]
     Active Substance: GLIPIZIDE
     Indication: Diabetes mellitus
     Dosage: 5 MG (5MG TABLETS TWO IN THE MORNING ONE AT NIGHT)
  5. LABETALOL HYDROCHLORIDE [Concomitant]
     Active Substance: LABETALOL HYDROCHLORIDE
     Indication: Blood pressure measurement
     Dosage: 100 MG HALF TABLET IN MORNING AND HALF TABLET AT NIGHT.

REACTIONS (3)
  - Blood pressure decreased [Unknown]
  - Heart rate increased [Unknown]
  - Hyperhidrosis [Unknown]
